FAERS Safety Report 6853192-9 (Version None)
Quarter: 2010Q3

REPORT INFORMATION
  Report Type: 
  Country: None (occurrence: None)
  Receive Date: 20100717
  Receipt Date: 20080108
  Transmission Date: 20110219
  Serious: No
  Sender: FDA-Public Use
  Company Number: US-PFIZER INC-2007101718

PATIENT
  Sex: Male
  Weight: 83.5 kg

DRUGS (4)
  1. CHANTIX [Suspect]
     Indication: SMOKING CESSATION THERAPY
     Dates: start: 20071223
  2. ATENOLOL [Concomitant]
  3. NORVASC [Concomitant]
  4. PRAVASTATIN [Concomitant]

REACTIONS (3)
  - AGITATION [None]
  - INSOMNIA [None]
  - NAUSEA [None]
